FAERS Safety Report 9922387 (Version 1)
Quarter: 2014Q1

REPORT INFORMATION
  Report Type: Spontaneous
  Country: US (occurrence: None)
  Receive Date: 20140224
  Receipt Date: 20140224
  Transmission Date: 20141002
  Serious: No
  Sender: FDA-Public Use
  Company Number: None

PATIENT
  Age: 72 Year
  Sex: Male
  Weight: 72.58 kg

DRUGS (1)
  1. CIPROFLOXACIN HCL [Suspect]
     Indication: CYSTITIS
     Dosage: 1 PILL TWICE A DAY TWICE DAILY TAKEN BY MOUTH
     Route: 048
     Dates: start: 20140218, end: 20140221

REACTIONS (2)
  - Arthralgia [None]
  - Activities of daily living impaired [None]
